FAERS Safety Report 5308148-4 (Version None)
Quarter: 2007Q2

REPORT INFORMATION
  Report Type: 
  Country: None (occurrence: None)
  Receive Date: 20070423
  Receipt Date: 20070423
  Transmission Date: 20071010
  Serious: Yes (Life-Threatening)
  Sender: FDA-Public Use
  Company Number: None

PATIENT
  Age: 46 Year
  Sex: Male
  Weight: 56.6996 kg

DRUGS (1)
  1. VARDENAFIL HCL 10 MG BAYER LEVERKUSEN GERMANY [Suspect]
     Indication: ERECTILE DYSFUNCTION
     Dosage: 1/2 TABLET -5 MG-  AS NEEDED  PO
     Route: 048
     Dates: start: 20070419, end: 20070420

REACTIONS (8)
  - DRUG INEFFECTIVE [None]
  - FEAR [None]
  - FEELING ABNORMAL [None]
  - FEELING HOT [None]
  - HEART RATE INCREASED [None]
  - PALPITATIONS [None]
  - SENSORY LOSS [None]
  - SUFFOCATION FEELING [None]
